FAERS Safety Report 25469223 (Version 1)
Quarter: 2025Q2

REPORT INFORMATION
  Report Type: Spontaneous
  Country: CA (occurrence: CA)
  Receive Date: 20250623
  Receipt Date: 20250623
  Transmission Date: 20250717
  Serious: Yes (Life-Threatening, Other)
  Sender: GILEAD
  Company Number: CA-GILEAD-2025-0718066

PATIENT
  Age: 67 Year
  Sex: Male

DRUGS (1)
  1. YESCARTA [Suspect]
     Active Substance: AXICABTAGENE CILOLEUCEL
     Indication: Chemotherapy
     Route: 042

REACTIONS (3)
  - Cytopenia [Not Recovered/Not Resolved]
  - Myelofibrosis [Not Recovered/Not Resolved]
  - Splenomegaly [Not Recovered/Not Resolved]
